FAERS Safety Report 9602547 (Version 2)
Quarter: 2013Q4

REPORT INFORMATION
  Report Type: Spontaneous
  Country: US (occurrence: US)
  Receive Date: 20131007
  Receipt Date: 20131127
  Transmission Date: 20140711
  Serious: No
  Sender: FDA-Public Use
  Company Number: US-PFIZER INC-2013282310

PATIENT
  Age: 81 Year
  Sex: Female
  Weight: 54.42 kg

DRUGS (2)
  1. ADVIL [Suspect]
     Indication: PAIN IN EXTREMITY
     Dosage: 200 MG, ONCE
     Dates: start: 20130930, end: 20130930
  2. ADVIL [Suspect]
     Indication: BACK PAIN

REACTIONS (1)
  - Drug ineffective [Unknown]
